FAERS Safety Report 9064224 (Version 1)
Quarter: 2013Q1

REPORT INFORMATION
  Report Type: Spontaneous
  Country: US (occurrence: US)
  Receive Date: 20130128
  Receipt Date: 20130128
  Transmission Date: 20140127
  Serious: No
  Sender: FDA-Public Use
  Company Number: US-MYLANLABS-2012S1021434

PATIENT
  Age: 83 Year
  Sex: Male
  Weight: 83.92 kg

DRUGS (2)
  1. TAMSULOSIN HYDROCHLORIDE [Suspect]
     Indication: DYSURIA
     Route: 048
  2. TAMSULOSIN HYDROCHLORIDE [Suspect]
     Indication: DYSURIA
     Route: 048
     Dates: start: 20121004

REACTIONS (2)
  - Drug effect decreased [Not Recovered/Not Resolved]
  - Dysuria [Not Recovered/Not Resolved]
